FAERS Safety Report 12627614 (Version 1)
Quarter: 2016Q3

REPORT INFORMATION
  Report Type: Report from Study
  Country: US (occurrence: US)
  Receive Date: 20160805
  Receipt Date: 20160805
  Transmission Date: 20161109
  Serious: Yes (Other)
  Sender: FDA-Public Use
  Company Number: US-AMGEN-USASL2016098704

PATIENT
  Age: 62 Year
  Sex: Female

DRUGS (1)
  1. ENBREL [Suspect]
     Active Substance: ETANERCEPT
     Indication: RHEUMATOID ARTHRITIS
     Dosage: UNK, QWK
     Route: 065

REACTIONS (10)
  - Hypersensitivity [Unknown]
  - Mass [Unknown]
  - Nasopharyngitis [Unknown]
  - Finger deformity [Unknown]
  - Spinal operation [Unknown]
  - Injury [Unknown]
  - Nerve injury [Unknown]
  - Drug dose omission [Unknown]
  - Thoracic operation [Unknown]
  - Wrong technique in product usage process [Unknown]

NARRATIVE: CASE EVENT DATE: 201506
